FAERS Safety Report 20310032 (Version 2)
Quarter: 2022Q1

REPORT INFORMATION
  Report Type: Spontaneous
  Country: US (occurrence: None)
  Receive Date: 20220107
  Receipt Date: 20220121
  Transmission Date: 20220423
  Serious: No
  Sender: FDA-Public Use
  Company Number: 2021A868333

PATIENT
  Age: 66 Year
  Sex: Female
  Weight: 75.3 kg

DRUGS (1)
  1. FASENRA [Suspect]
     Active Substance: BENRALIZUMAB
     Dosage: 30MG/ML EVERY FOUR WEEKS
     Route: 058
     Dates: start: 20211102

REACTIONS (3)
  - Headache [Not Recovered/Not Resolved]
  - Product administration error [Unknown]
  - Device leakage [Unknown]

NARRATIVE: CASE EVENT DATE: 20211209
